FAERS Safety Report 7120670-7 (Version None)
Quarter: 2010Q4

REPORT INFORMATION
  Report Type: 
  Country: None (occurrence: None)
  Receive Date: 20101124
  Receipt Date: 20101112
  Transmission Date: 20110411
  Serious: Yes (Hospitalization, Disabling, Other)
  Sender: FDA-Public Use
  Company Number: US-BAYER-200942494NA

PATIENT
  Age: 31 Year
  Sex: Female
  Weight: 76 kg

DRUGS (11)
  1. YAZ [Suspect]
     Indication: PRODUCT USED FOR UNKNOWN INDICATION
     Dates: start: 20060601, end: 20080107
  2. TAVIFLU [Concomitant]
  3. TOPAMAX [Concomitant]
     Indication: MIGRAINE
     Dates: start: 19980101
  4. ALEVE (CAPLET) [Concomitant]
  5. MULTI-VITAMIN [Concomitant]
     Dosage: INTERMITTENTLY ON A DAILY BASIS
  6. TYLENOL (CAPLET) [Concomitant]
     Indication: PYREXIA
  7. PLAVIX [Concomitant]
  8. ACIPHEX [Concomitant]
  9. CLONAZEPAM [Concomitant]
  10. ZOCOR [Concomitant]
  11. PROTONIX [Concomitant]

REACTIONS (16)
  - ABDOMINAL PAIN UPPER [None]
  - ASTHENIA [None]
  - BALANCE DISORDER [None]
  - BLINDNESS [None]
  - CEREBROVASCULAR ACCIDENT [None]
  - CRANIAL NERVE PARALYSIS [None]
  - DIPLOPIA [None]
  - DIZZINESS [None]
  - GAIT DISTURBANCE [None]
  - GASTROENTERITIS VIRAL [None]
  - HEADACHE [None]
  - NAUSEA [None]
  - NIGHT BLINDNESS [None]
  - PARESIS [None]
  - TRANSIENT ISCHAEMIC ATTACK [None]
  - VOMITING [None]
